FAERS Safety Report 18442579 (Version 3)
Quarter: 2020Q4

REPORT INFORMATION
  Report Type: Report from Study
  Country: US (occurrence: US)
  Receive Date: 20201029
  Receipt Date: 20201202
  Transmission Date: 20210114
  Serious: No
  Sender: FDA-Public Use
  Company Number: NVSC2020US290019

PATIENT
  Sex: Female

DRUGS (2)
  1. PIQRAY [Suspect]
     Active Substance: ALPELISIB
     Indication: BREAST CANCER FEMALE
     Dosage: 300 MG, QD
     Route: 048
     Dates: start: 202009
  2. PIQRAY [Suspect]
     Active Substance: ALPELISIB
     Dosage: 200 MG, QD
     Route: 048

REACTIONS (6)
  - Rash [Unknown]
  - Pyrexia [Unknown]
  - Decreased appetite [Unknown]
  - Drug intolerance [Unknown]
  - Nausea [Unknown]
  - Diarrhoea [Unknown]
